APPROVED DRUG PRODUCT: LAMICTAL CD
Active Ingredient: LAMOTRIGINE
Strength: 100MG
Dosage Form/Route: TABLET, FOR SUSPENSION;ORAL
Application: N020764 | Product #003
Applicant: GLAXOSMITHKLINE LLC
Approved: Aug 24, 1998 | RLD: No | RS: No | Type: DISCN